FAERS Safety Report 8161551-X (Version None)
Quarter: 2012Q1

REPORT INFORMATION
  Report Type: 
  Country: None (occurrence: None)
  Receive Date: 20120222
  Receipt Date: 20120222
  Transmission Date: 20120608
  Serious: Yes (Other)
  Sender: FDA-Public Use
  Company Number: None

PATIENT
  Age: 58 Year
  Sex: Female
  Weight: 65.318 kg

DRUGS (2)
  1. LEVOFLOXACIN [Suspect]
     Indication: SINUSITIS
     Dosage: 1 TABLET 1 PER DAY FOR 5 DAYS BY MOUTH
     Route: 048
     Dates: start: 20111220, end: 20111224
  2. LEVOFLOXACIN [Suspect]
     Indication: URINARY TRACT INFECTION
     Dosage: 1 TABLET 1 PER DAY FOR 5 DAYS BY MOUTH
     Route: 048
     Dates: start: 20111220, end: 20111224

REACTIONS (4)
  - MYALGIA [None]
  - ODYNOPHAGIA [None]
  - PAIN IN EXTREMITY [None]
  - PAIN IN JAW [None]
